FAERS Safety Report 5650134-9 (Version None)
Quarter: 2008Q1

REPORT INFORMATION
  Report Type: 
  Country: None (occurrence: None)
  Receive Date: 20080131
  Receipt Date: 20071206
  Transmission Date: 20080703
  Serious: No
  Sender: FDA-Public Use
  Company Number: US200712001599

PATIENT
  Age: 63 Year
  Sex: Female
  Weight: 106.6 kg

DRUGS (3)
  1. BYETTA [Suspect]
     Indication: TYPE 2 DIABETES MELLITUS
     Dosage: 5 UG, 2/D, SUBCUTANEOUS
     Route: 058
     Dates: start: 20070801
  2. METFORMIN HCL [Concomitant]
  3. ACTOS [Concomitant]

REACTIONS (4)
  - DECREASED APPETITE [None]
  - FOREIGN BODY TRAUMA [None]
  - INJECTION SITE INJURY [None]
  - WEIGHT DECREASED [None]
